FAERS Safety Report 8027770-8 (Version None)
Quarter: 2012Q1

REPORT INFORMATION
  Report Type: 
  Country: None (occurrence: None)
  Receive Date: 20120106
  Receipt Date: 20120106
  Transmission Date: 20120608
  Serious: Yes (Other)
  Sender: FDA-Public Use
  Company Number: None

PATIENT
  Age: 43 Year
  Sex: Female
  Weight: 63.502 kg

DRUGS (3)
  1. HYDROCODONE BITARTRATE AND ACETAMINOPHEN [Concomitant]
     Route: 048
  2. NEURONTIN [Suspect]
     Indication: NEUROMA
     Dosage: 300MG
     Route: 048
     Dates: start: 20080729, end: 20081129
  3. NEURONTIN [Suspect]
     Indication: PAIN
     Dosage: 300MG
     Route: 048
     Dates: start: 20080729, end: 20081129

REACTIONS (14)
  - MENTAL IMPAIRMENT [None]
  - MEMORY IMPAIRMENT [None]
  - COGNITIVE DISORDER [None]
  - DEPRESSION [None]
  - DISTURBANCE IN ATTENTION [None]
  - INSOMNIA [None]
  - APHASIA [None]
  - FEELING OF DESPAIR [None]
  - OFF LABEL USE [None]
  - LOSS OF EMPLOYMENT [None]
  - DRUG INEFFECTIVE [None]
  - IMPAIRED WORK ABILITY [None]
  - WEIGHT INCREASED [None]
  - DYSLEXIA [None]
